FAERS Safety Report 25988581 (Version 1)
Quarter: 2025Q4

REPORT INFORMATION
  Report Type: Spontaneous
  Country: US (occurrence: US)
  Receive Date: 20251103
  Receipt Date: 20251103
  Transmission Date: 20260117
  Serious: No
  Sender: ROCHE
  Company Number: US-ROCHE-10000419075

PATIENT
  Age: 40 Year
  Sex: Female
  Weight: 79.37 kg

DRUGS (3)
  1. OCREVUS [Suspect]
     Active Substance: OCRELIZUMAB
     Indication: Multiple sclerosis
     Route: 042
     Dates: start: 20230921
  2. BENADRYL [Concomitant]
     Active Substance: DIPHENHYDRAMINE HYDROCHLORIDE
     Route: 042
  3. SOLU-MEDROL [Concomitant]
     Active Substance: METHYLPREDNISOLONE SODIUM SUCCINATE
     Route: 042

REACTIONS (6)
  - Palpitations [Unknown]
  - Pruritus [Unknown]
  - Pruritus [Unknown]
  - Underdose [Unknown]
  - Throat irritation [Unknown]
  - Ear discomfort [Unknown]

NARRATIVE: CASE EVENT DATE: 20251002
